FAERS Safety Report 18253435 (Version 1)
Quarter: 2020Q3

REPORT INFORMATION
  Report Type: Spontaneous
  Country: US (occurrence: US)
  Receive Date: 20200910
  Receipt Date: 20200910
  Transmission Date: 20201103
  Serious: Yes (Other)
  Sender: FDA-Public Use
  Company Number: US-AMGEN INC.-USASP2020144623

PATIENT
  Age: 38 Year
  Sex: Female

DRUGS (4)
  1. AIMOVIG [Suspect]
     Active Substance: ERENUMAB-AOOE
     Indication: PROPHYLAXIS
     Dosage: 70 MILLIGRAM, QMO
     Route: 065
     Dates: start: 202007
  2. PROLIA [Suspect]
     Active Substance: DENOSUMAB
     Indication: OSTEOPENIA
     Dosage: UNK UNK, UNK
     Route: 065
     Dates: start: 2017
  3. CALCIUM [Concomitant]
     Active Substance: CALCIUM
     Dosage: 5200 MILLIGRAM, QD
  4. UBRELVY [Concomitant]
     Active Substance: UBROGEPANT
     Dosage: 100 MILLIGRAM

REACTIONS (9)
  - Neuropathy peripheral [Unknown]
  - Avulsion fracture [Unknown]
  - Ligament rupture [Unknown]
  - Blood creatinine increased [Unknown]
  - Balance disorder [Unknown]
  - Tendon rupture [Unknown]
  - Off label use [Unknown]
  - Therapeutic product effect incomplete [Unknown]
  - Foot fracture [Unknown]

NARRATIVE: CASE EVENT DATE: 2017
